FAERS Safety Report 5586894-5 (Version None)
Quarter: 2008Q1

REPORT INFORMATION
  Report Type: 
  Country: None (occurrence: None)
  Receive Date: 20080110
  Receipt Date: 20080110
  Transmission Date: 20080703
  Serious: Yes (Hospitalization)
  Sender: FDA-Public Use
  Company Number: DK-GENENTECH-252899

PATIENT

DRUGS (1)
  1. RAPTIVA [Suspect]
     Indication: PSORIASIS

REACTIONS (2)
  - COLITIS ULCERATIVE [None]
  - GASTRIC DISORDER [None]
